FAERS Safety Report 12098080 (Version 4)
Quarter: 2016Q1

REPORT INFORMATION
  Report Type: Spontaneous
  Country: US (occurrence: US)
  Receive Date: 20160221
  Receipt Date: 20160324
  Transmission Date: 20160526
  Serious: No
  Sender: FDA-Public Use
  Company Number: US-AMGEN-USASP2016018740

PATIENT
  Age: 21 Year
  Sex: Female

DRUGS (4)
  1. ENBREL [Suspect]
     Active Substance: ETANERCEPT
     Indication: PSORIASIS
  2. ENBREL [Suspect]
     Active Substance: ETANERCEPT
     Indication: PSORIATIC ARTHROPATHY
     Dosage: 50 MG, TWICE WEEKLY
     Route: 058
     Dates: start: 201601
  3. ACETYLSALICYLIC ACID [Concomitant]
     Active Substance: ASPIRIN
     Dosage: UNK
     Dates: start: 2016
  4. GLUCOSAMINE + CHONDROITIN          /01430901/ [Concomitant]
     Dosage: UNK
     Dates: start: 2016

REACTIONS (8)
  - Injection site erythema [Unknown]
  - Injection site pruritus [Unknown]
  - Injection site bruising [Unknown]
  - Fatigue [Unknown]
  - Drug administration error [Unknown]
  - Extra dose administered [Unknown]
  - Injection site reaction [Unknown]
  - Injection site swelling [Unknown]

NARRATIVE: CASE EVENT DATE: 2016
